FAERS Safety Report 8943477 (Version 1)
Quarter: 2012Q4

REPORT INFORMATION
  Report Type: Report from Study
  Country: JP (occurrence: JP)
  Receive Date: 20121204
  Receipt Date: 20121204
  Transmission Date: 20130627
  Serious: Yes (Hospitalization)
  Sender: FDA-Public Use
  Company Number: JP-VERTEX PHARMACEUTICALS INC.-2012-025478

PATIENT
  Age: 67 Year
  Sex: Male

DRUGS (10)
  1. VX-950 (TELAPREVIR) [Suspect]
     Indication: CHRONIC HEPATITIS C
     Dosage: 1500 mg, qd
     Route: 048
     Dates: start: 20120525, end: 20120730
  2. REBETOL [Suspect]
     Indication: CHRONIC HEPATITIS C
     Dosage: 800 mg, qd
     Route: 048
     Dates: start: 20120525, end: 20121010
  3. PEGINTRON                          /01543001/ [Suspect]
     Indication: CHRONIC HEPATITIS C
     Dosage: 1.5 ?g/kg, qw
     Route: 058
     Dates: start: 20120525, end: 20121003
  4. PARIET [Concomitant]
     Dosage: 10 mg, qd
     Route: 048
  5. LIVALO [Concomitant]
     Dosage: 1 mg, qd
     Route: 048
  6. STAYBLA [Concomitant]
     Dosage: 0.1 mg, qd
     Route: 048
  7. PROMAC                             /01312301/ [Concomitant]
     Dosage: 150 g, qd
     Route: 048
  8. KRACIE HOCHUEKKITO EXTRACT GRANULES [Concomitant]
     Dosage: 7.5 g, qd
     Route: 048
  9. CP                                 /00257901/ [Concomitant]
     Dosage: 3.0 g, qd
     Route: 048
  10. JUVELA N [Concomitant]
     Dosage: 300 mg, qd
     Route: 048

REACTIONS (1)
  - Interstitial lung disease [Recovered/Resolved]
